FAERS Safety Report 17473552 (Version 1)
Quarter: 2020Q1

REPORT INFORMATION
  Report Type: Spontaneous
  Country: CA (occurrence: CA)
  Receive Date: 20200218
  Receipt Date: 20200218
  Transmission Date: 20200409
  Serious: Yes (Life-Threatening)
  Sender: FDA-Public Use
  Company Number: None

PATIENT
  Age: 71 Year
  Sex: Female
  Weight: 58.97 kg

DRUGS (2)
  1. LYRICA [Suspect]
     Active Substance: PREGABALIN
     Indication: LUNG OPERATION
     Dosage: ?          OTHER STRENGTH:75;QUANTITY:1;OTHER FREQUENCY:1;?
     Route: 048
  2. LYRICA [Suspect]
     Active Substance: PREGABALIN
     Indication: NEURALGIA
     Dosage: ?          OTHER STRENGTH:75;QUANTITY:1;OTHER FREQUENCY:1;?
     Route: 048

REACTIONS (7)
  - Chills [None]
  - Suicidal ideation [None]
  - Feeling abnormal [None]
  - Nervous system disorder [None]
  - Hyperhidrosis [None]
  - Speech disorder [None]
  - Gait inability [None]

NARRATIVE: CASE EVENT DATE: 20200115
